FAERS Safety Report 5472241-6 (Version None)
Quarter: 2007Q3

REPORT INFORMATION
  Report Type: 
  Country: None (occurrence: None)
  Receive Date: 20070926
  Receipt Date: 20070914
  Transmission Date: 20080115
  Serious: Yes (Other)
  Sender: FDA-Public Use
  Company Number: 2007331390

PATIENT
  Sex: Female

DRUGS (1)
  1. LISTERINE AGENT COOL BLUE (UNSPECIFIED) (NO ACTIVE INGREDIENT) [Suspect]
     Indication: DENTAL PLAQUE
     Dosage: UNSPECIFIED, ORAL
     Route: 048
     Dates: start: 20070323

REACTIONS (3)
  - DYSPNOEA [None]
  - MOUTH ULCERATION [None]
  - PHARYNGOLARYNGEAL PAIN [None]
